FAERS Safety Report 25465172 (Version 1)
Quarter: 2025Q2

REPORT INFORMATION
  Report Type: Spontaneous
  Country: CN (occurrence: CN)
  Receive Date: 20250622
  Receipt Date: 20250622
  Transmission Date: 20250716
  Serious: Yes (Other)
  Sender: BEIGENE
  Company Number: CN-BEIGENE-BGN-2025-009624

PATIENT
  Age: 75 Year
  Weight: 53 kg

DRUGS (12)
  1. TISLELIZUMAB [Suspect]
     Active Substance: TISLELIZUMAB
     Indication: Squamous cell carcinoma of lung
  2. TISLELIZUMAB [Suspect]
     Active Substance: TISLELIZUMAB
     Route: 041
  3. TISLELIZUMAB [Suspect]
     Active Substance: TISLELIZUMAB
     Route: 041
  4. TISLELIZUMAB [Suspect]
     Active Substance: TISLELIZUMAB
  5. PACLITAXEL [Suspect]
     Active Substance: PACLITAXEL
     Indication: Squamous cell carcinoma of lung
  6. PACLITAXEL [Suspect]
     Active Substance: PACLITAXEL
     Route: 041
  7. PACLITAXEL [Suspect]
     Active Substance: PACLITAXEL
     Route: 041
  8. PACLITAXEL [Suspect]
     Active Substance: PACLITAXEL
  9. PARAPLATIN [Suspect]
     Active Substance: CARBOPLATIN
     Indication: Squamous cell carcinoma of lung
  10. PARAPLATIN [Suspect]
     Active Substance: CARBOPLATIN
     Route: 041
  11. PARAPLATIN [Suspect]
     Active Substance: CARBOPLATIN
     Route: 041
  12. PARAPLATIN [Suspect]
     Active Substance: CARBOPLATIN

REACTIONS (1)
  - Myelosuppression [Recovering/Resolving]
